FAERS Safety Report 8594028-8 (Version None)
Quarter: 2012Q3

REPORT INFORMATION
  Report Type: 
  Country: None (occurrence: None)
  Receive Date: 20120814
  Receipt Date: 20120803
  Transmission Date: 20120928
  Serious: Yes (Other)
  Sender: FDA-Public Use
  Company Number: US-BAYER-2011-060318

PATIENT
  Age: 69 Year
  Sex: Male

DRUGS (15)
  1. NEPHROVITE [VIT C,VIT H,B5,B12,B9,B3,B6,B2,B1 HCL] [Concomitant]
     Indication: VITAMIN SUPPLEMENTATION
     Dosage: UNK
     Dates: start: 20010101
  2. MINOXIDIL [Concomitant]
     Indication: HYPERTENSION
     Dosage: UNK
     Dates: start: 20010101
  3. ZEMPLAR [Concomitant]
  4. DOXAZOSIN MESYLATE [Concomitant]
     Dosage: 8 MG, QD
     Route: 048
  5. GADOLINIUM IN UNSPECIFIED DRUG [Suspect]
     Indication: NUCLEAR MAGNETIC RESONANCE IMAGING ABDOMINAL
     Dosage: UNK
     Dates: start: 20040421, end: 20040421
  6. SENSIPAR [Concomitant]
     Indication: BLOOD CALCIUM INCREASED
  7. FOLIC ACID [Concomitant]
     Dosage: 1 MG, QD
     Route: 048
  8. ISOSORBIDE [Concomitant]
     Indication: HYPERTENSION
     Dosage: UNK
     Dates: start: 20010101
  9. ALLOPURINOL [Concomitant]
     Indication: GOUT
  10. GADOLINIUM IN UNSPECIFIED DRUG [Suspect]
     Indication: ANGIOGRAM
     Dosage: UNK
     Dates: start: 20040413, end: 20040413
  11. OXYCONTIN [Concomitant]
     Indication: PAIN
     Dosage: UNK
     Dates: start: 20010101
  12. MAGNEVIST [Suspect]
     Indication: NUCLEAR MAGNETIC RESONANCE IMAGING SPINAL
     Dosage: UNK
     Route: 042
     Dates: start: 20050222, end: 20050222
  13. EPOGEN [Concomitant]
     Indication: RED BLOOD CELL ABNORMALITY
     Dosage: UNK
     Dates: start: 20010101
  14. CRESTOR [Concomitant]
     Indication: BLOOD CHOLESTEROL INCREASED
     Dosage: UNK
     Dates: start: 20010101
  15. PHOSLO [Concomitant]
     Indication: BLOOD PHOSPHORUS INCREASED

REACTIONS (18)
  - SKIN DISCOLOURATION [None]
  - MUSCULAR WEAKNESS [None]
  - OEDEMA PERIPHERAL [None]
  - SKIN FISSURES [None]
  - SKIN HYPERPIGMENTATION [None]
  - NEPHROGENIC SYSTEMIC FIBROSIS [None]
  - MOBILITY DECREASED [None]
  - PAIN IN EXTREMITY [None]
  - HAND DEFORMITY [None]
  - DRY SKIN [None]
  - SKIN PLAQUE [None]
  - INJURY [None]
  - MUSCLE TIGHTNESS [None]
  - SKIN INDURATION [None]
  - SKIN EXFOLIATION [None]
  - ABASIA [None]
  - NODULE [None]
  - SUBCUTANEOUS NODULE [None]
